FAERS Safety Report 17976747 (Version 2)
Quarter: 2020Q3

REPORT INFORMATION
  Report Type: Spontaneous
  Country: US (occurrence: US)
  Receive Date: 20200703
  Receipt Date: 20200707
  Transmission Date: 20201103
  Serious: No
  Sender: FDA-Public Use
  Company Number: US-BEH-2020119581

PATIENT
  Age: 43 Year
  Sex: Male

DRUGS (1)
  1. HIZENTRA [Suspect]
     Active Substance: HUMAN IMMUNOGLOBULIN G
     Dosage: 30 GRAM, TOT
     Route: 065

REACTIONS (4)
  - No adverse event [Unknown]
  - Off label use [Unknown]
  - Malabsorption from injection site [Unknown]
  - Injection site swelling [Unknown]
